FAERS Safety Report 24153667 (Version 2)
Quarter: 2024Q3

REPORT INFORMATION
  Report Type: Spontaneous
  Country: US (occurrence: US)
  Receive Date: 20240730
  Receipt Date: 20240920
  Transmission Date: 20241017
  Serious: Yes (Other)
  Sender: BRISTOL MYERS SQUIBB
  Company Number: US-BRISTOL-MYERS SQUIBB COMPANY-2024-115979

PATIENT
  Age: 70 Year
  Sex: Female

DRUGS (2)
  1. LENALIDOMIDE [Suspect]
     Active Substance: LENALIDOMIDE
     Indication: Plasma cell myeloma
     Dosage: TAKE 1 CAPSULE BY MOUTH EVERY DAY FOR 14 DAYS
     Route: 048
     Dates: start: 20240507
  2. LENALIDOMIDE [Suspect]
     Active Substance: LENALIDOMIDE
     Dosage: TAKE 1 CAPSULE BY MOUTH EVERY DAY FOR 14 DAYS FOR 2 WEEKS ON TREATMENT THEN 2 WEEKS OFF TREATMENT
     Route: 048
     Dates: end: 2024

REACTIONS (22)
  - Pain [Not Recovered/Not Resolved]
  - Fatigue [Recovering/Resolving]
  - Nausea [Not Recovered/Not Resolved]
  - Decreased appetite [Unknown]
  - Constipation [Unknown]
  - Diarrhoea [Unknown]
  - Product dose omission issue [Unknown]
  - Dry skin [Recovering/Resolving]
  - Rash [Unknown]
  - Depression [Not Recovered/Not Resolved]
  - Dysgeusia [Unknown]
  - Dry mouth [Unknown]
  - Fall [Unknown]
  - Affective disorder [Recovering/Resolving]
  - Disturbance in attention [Unknown]
  - Renal disorder [Recovering/Resolving]
  - Paraesthesia [Recovering/Resolving]
  - Back pain [Recovering/Resolving]
  - Thirst [Recovering/Resolving]
  - Nasopharyngitis [Recovering/Resolving]
  - Pain in extremity [Recovering/Resolving]
  - Off label use [Unknown]
